FAERS Safety Report 21136629 (Version 1)
Quarter: 2022Q3

REPORT INFORMATION
  Report Type: Spontaneous
  Country: US (occurrence: None)
  Receive Date: 20220726
  Receipt Date: 20220726
  Transmission Date: 20221027
  Serious: Yes (Hospitalization)
  Sender: FDA-Public Use
  Company Number: None

PATIENT
  Sex: Female

DRUGS (7)
  1. HUMIRA [Suspect]
     Active Substance: ADALIMUMAB
     Indication: Crohn^s disease
     Dosage: OTHER QUANTITY : 40MG/0.8ML;?FREQUENCY : AS DIRECTED;?
     Route: 058
     Dates: start: 20181221
  2. ADDERALL [Concomitant]
  3. AMPHET/DEXTR TAB [Concomitant]
  4. BUDESONIDE [Concomitant]
     Active Substance: BUDESONIDE
  5. COLACE [Concomitant]
     Active Substance: DOCUSATE SODIUM
  6. HUMIRA [Concomitant]
     Active Substance: ADALIMUMAB
  7. HYOSCYAMINE [Concomitant]
     Active Substance: HYOSCYAMINE

REACTIONS (1)
  - Condition aggravated [None]
